FAERS Safety Report 11169747 (Version 2)
Quarter: 2015Q2

REPORT INFORMATION
  Report Type: Spontaneous
  Country: DE (occurrence: DE)
  Receive Date: 20150606
  Receipt Date: 20150608
  Transmission Date: 20150821
  Serious: Yes (Other)
  Sender: FDA-Public Use
  Company Number: DE-SUN PHARMACEUTICAL INDUSTRIES LTD-2015R1-98323

PATIENT

DRUGS (1)
  1. ALLOPURINOL. [Suspect]
     Active Substance: ALLOPURINOL
     Indication: PRODUCT USED FOR UNKNOWN INDICATION
     Dosage: UNK
     Route: 064

REACTIONS (2)
  - Premature baby [Unknown]
  - Foetal exposure during pregnancy [Recovered/Resolved]
